FAERS Safety Report 12746056 (Version 1)
Quarter: 2016Q3

REPORT INFORMATION
  Report Type: Spontaneous
  Country: US (occurrence: US)
  Receive Date: 20160914
  Receipt Date: 20160914
  Transmission Date: 20161109
  Serious: Yes (Other)
  Sender: FDA-Public Use
  Company Number: None

PATIENT
  Age: 39 Year
  Sex: Female
  Weight: 67 kg

DRUGS (4)
  1. LINEZOLID 600 MG [Suspect]
     Active Substance: LINEZOLID
     Indication: STAPHYLOCOCCAL INFECTION
     Route: 048
     Dates: start: 20160908, end: 20160914
  2. FENTYNAL [Concomitant]
     Active Substance: FENTANYL
  3. CELEBREX [Concomitant]
     Active Substance: CELECOXIB
  4. ZANAFLEX [Concomitant]
     Active Substance: TIZANIDINE HYDROCHLORIDE

REACTIONS (5)
  - Heart rate increased [None]
  - Diarrhoea [None]
  - Asthenia [None]
  - Hypersomnia [None]
  - Dyspnoea [None]

NARRATIVE: CASE EVENT DATE: 20160909
